FAERS Safety Report 22225379 (Version 1)
Quarter: 2023Q2

REPORT INFORMATION
  Report Type: Report from Study
  Country: DE (occurrence: None)
  Receive Date: 20230418
  Receipt Date: 20230418
  Transmission Date: 20230721
  Serious: Yes (Hospitalization)
  Sender: FDA-Public Use
  Company Number: DE-Merck Healthcare KGaA-9396291

PATIENT
  Age: 36 Year
  Sex: Female

DRUGS (4)
  1. CLADRIBINE [Suspect]
     Active Substance: CLADRIBINE
     Indication: Multiple sclerosis
     Dosage: KIT NUMBER- 100324, 600327?YEAR 1 WEEK 1- NO OF TABLETS 7
     Route: 048
     Dates: start: 20190411, end: 20190415
  2. CLADRIBINE [Suspect]
     Active Substance: CLADRIBINE
     Dosage: KIT NUMBER- 100327, 600258?YEAR 1 WEEK 2- NO OF TABLETS 7
     Route: 048
     Dates: start: 20190515, end: 20190519
  3. CLADRIBINE [Suspect]
     Active Substance: CLADRIBINE
     Dosage: YEAR 2 WEEK 1- NO OF TABLETS 7
     Route: 048
     Dates: start: 20200422, end: 20200426
  4. CLADRIBINE [Suspect]
     Active Substance: CLADRIBINE
     Dosage: YEAR 2 WEEK 2- NO OF TABLETS- 7
     Route: 048
     Dates: start: 20200522, end: 20200526

REACTIONS (2)
  - Peritonsillitis [Recovered/Resolved]
  - Tonsillitis [Recovered/Resolved]

NARRATIVE: CASE EVENT DATE: 20230329
